FAERS Safety Report 25843680 (Version 1)
Quarter: 2025Q3

REPORT INFORMATION
  Report Type: Spontaneous
  Country: CN (occurrence: CN)
  Receive Date: 20250924
  Receipt Date: 20250924
  Transmission Date: 20251021
  Serious: Yes (Life-Threatening)
  Sender: BEIGENE
  Company Number: CN-BEIGENE-BGN-2025-016381

PATIENT
  Age: 56 Year
  Weight: 80 kg

DRUGS (1)
  1. TISLELIZUMAB [Suspect]
     Active Substance: TISLELIZUMAB
     Indication: Lung neoplasm malignant

REACTIONS (2)
  - Mucous stools [Recovering/Resolving]
  - Haematochezia [Recovering/Resolving]
